FAERS Safety Report 19620123 (Version 1)
Quarter: 2021Q3

REPORT INFORMATION
  Report Type: Spontaneous
  Country: US (occurrence: US)
  Receive Date: 20210728
  Receipt Date: 20210728
  Transmission Date: 20211014
  Serious: No
  Sender: FDA-Public Use
  Company Number: US-ROCHE-2731668

PATIENT
  Age: 77 Year
  Sex: Female

DRUGS (4)
  1. XELODA [Suspect]
     Active Substance: CAPECITABINE
     Route: 048
     Dates: start: 202012
  2. XELODA [Suspect]
     Active Substance: CAPECITABINE
     Route: 048
     Dates: start: 202101
  3. XELODA [Suspect]
     Active Substance: CAPECITABINE
     Route: 048
     Dates: start: 202102
  4. XELODA [Suspect]
     Active Substance: CAPECITABINE
     Indication: PRODUCT USED FOR UNKNOWN INDICATION
     Route: 048
     Dates: start: 202011

REACTIONS (14)
  - Blood pressure fluctuation [Unknown]
  - Dyspnoea [Unknown]
  - Dry skin [Unknown]
  - Adverse drug reaction [Unknown]
  - Product dose omission in error [Unknown]
  - Gastrooesophageal reflux disease [Unknown]
  - Diarrhoea [Unknown]
  - Oropharyngeal discomfort [Unknown]
  - Cyanosis [Unknown]
  - Dysphagia [Unknown]
  - Asthenia [Unknown]
  - Palmar-plantar erythrodysaesthesia syndrome [Unknown]
  - Hot flush [Unknown]
  - Skin discolouration [Unknown]

NARRATIVE: CASE EVENT DATE: 20201208
